FAERS Safety Report 6262572-4 (Version None)
Quarter: 2009Q3

REPORT INFORMATION
  Report Type: 
  Country: None (occurrence: None)
  Receive Date: 20090709
  Receipt Date: 20090706
  Transmission Date: 20100115
  Serious: Yes (Hospitalization, Other)
  Sender: FDA-Public Use
  Company Number: US-ELI_LILLY_AND_COMPANY-US200907000881

PATIENT
  Sex: Male

DRUGS (8)
  1. HUMULIN N [Suspect]
     Dosage: UNK, UNK
     Dates: start: 20040101
  2. HUMALOG [Suspect]
     Dosage: UNK, AS NEEDED
     Dates: start: 20090101
  3. HUMALOG [Suspect]
     Dosage: 20 U, UNK
  4. LISINOPRIL [Concomitant]
     Indication: HYPERTENSION
  5. SIMVASTATIN [Concomitant]
     Indication: BLOOD CHOLESTEROL
     Dates: start: 20090101
  6. ASPIRIN [Concomitant]
  7. LANTUS [Concomitant]
     Indication: TYPE 2 DIABETES MELLITUS
     Dosage: 40 U, UNK
  8. NOVOLIN 70/30 [Concomitant]
     Dates: end: 20090101

REACTIONS (3)
  - BLOOD CHOLESTEROL INCREASED [None]
  - CEREBROVASCULAR ACCIDENT [None]
  - INJECTION SITE PAIN [None]
